FAERS Safety Report 4750758-7 (Version None)
Quarter: 2005Q3

REPORT INFORMATION
  Report Type: 
  Country: None (occurrence: None)
  Receive Date: 20050823
  Receipt Date: 20050311
  Transmission Date: 20060218
  Serious: Yes (Hospitalization, Disabling, Other)
  Sender: FDA-Public Use
  Company Number: US-MERCK-0503USA02623

PATIENT
  Age: 43 Year
  Sex: Female
  Weight: 182 kg

DRUGS (4)
  1. VIOXX [Suspect]
     Indication: ARTHRITIS
     Route: 048
     Dates: start: 20020101, end: 20030101
  2. HYDROCHLOROTHIAZIDE [Concomitant]
     Indication: HYPERTENSION
     Route: 065
     Dates: start: 20000101
  3. PRILOSEC [Concomitant]
     Route: 065
  4. LISINOPRIL [Concomitant]
     Route: 065

REACTIONS (11)
  - ARRHYTHMIA [None]
  - ASTHENIA [None]
  - CEREBROVASCULAR ACCIDENT [None]
  - CHEST PAIN [None]
  - DYSPNOEA [None]
  - GASTRIC HAEMORRHAGE [None]
  - GASTROOESOPHAGEAL REFLUX DISEASE [None]
  - HEART RATE IRREGULAR [None]
  - HEMIPARESIS [None]
  - OBESITY [None]
  - TRANSIENT ISCHAEMIC ATTACK [None]
